APPROVED DRUG PRODUCT: TAVABOROLE
Active Ingredient: TAVABOROLE
Strength: 5%
Dosage Form/Route: SOLUTION;TOPICAL
Application: A211963 | Product #001 | TE Code: AB
Applicant: CHARTWELL RX SCIENCES LLC
Approved: Feb 3, 2021 | RLD: No | RS: No | Type: RX